FAERS Safety Report 7577400-4 (Version None)
Quarter: 2011Q2

REPORT INFORMATION
  Report Type: 
  Country: None (occurrence: None)
  Receive Date: 20110628
  Receipt Date: 20110613
  Transmission Date: 20111010
  Serious: No
  Sender: FDA-Public Use
  Company Number: US-BAYER-2011-050602

PATIENT
  Sex: Female

DRUGS (3)
  1. VITAMIN D [Concomitant]
  2. BEYAZ [Suspect]
     Indication: PRODUCT USED FOR UNKNOWN INDICATION
  3. IRON SUPPLEMENT [Concomitant]

REACTIONS (1)
  - ALOPECIA [None]
